FAERS Safety Report 10525509 (Version 3)
Quarter: 2014Q4

REPORT INFORMATION
  Report Type: Report from Study
  Country: DE (occurrence: DE)
  Receive Date: 20141017
  Receipt Date: 20141030
  Transmission Date: 20150528
  Serious: No
  Sender: FDA-Public Use
  Company Number: DE-SA-2014SA118177

PATIENT
  Age: 61 Year
  Sex: Female

DRUGS (2)
  1. L-THYROXIN [Concomitant]
     Active Substance: LEVOTHYROXINE SODIUM
     Indication: HYPERTHYROIDISM
     Route: 048
     Dates: start: 2000
  2. AUBAGIO [Suspect]
     Active Substance: TERIFLUNOMIDE
     Indication: MULTIPLE SCLEROSIS
     Route: 048
     Dates: start: 201409

REACTIONS (19)
  - Cholelithiasis [Not Recovered/Not Resolved]
  - Arthropathy [Unknown]
  - Influenza [Not Recovered/Not Resolved]
  - Fatigue [Not Recovered/Not Resolved]
  - Gait disturbance [Not Recovered/Not Resolved]
  - Condition aggravated [Not Recovered/Not Resolved]
  - Dysstasia [Not Recovered/Not Resolved]
  - Feeling cold [Recovering/Resolving]
  - Oropharyngeal pain [Not Recovered/Not Resolved]
  - Insomnia [Unknown]
  - Rhinitis [Unknown]
  - Pollakiuria [Recovering/Resolving]
  - Bronchitis [Not Recovered/Not Resolved]
  - Ear pain [Unknown]
  - Tonsillitis [Not Recovered/Not Resolved]
  - Hot flush [Not Recovered/Not Resolved]
  - Hyperhidrosis [Not Recovered/Not Resolved]
  - Urge incontinence [Unknown]
  - Influenza like illness [Unknown]

NARRATIVE: CASE EVENT DATE: 201408
